FAERS Safety Report 5663978-4 (Version None)
Quarter: 2008Q1

REPORT INFORMATION
  Report Type: 
  Country: None (occurrence: None)
  Receive Date: 20080314
  Receipt Date: 20071227
  Transmission Date: 20080703
  Serious: Yes (Other)
  Sender: FDA-Public Use
  Company Number: ES-WYE-H03079908

PATIENT
  Age: 30 Year
  Sex: Male

DRUGS (1)
  1. PANTECTA [Suspect]
     Dosage: 20 MG (FREQUENCY UNSPECIFIED)
     Route: 048
     Dates: start: 20070701, end: 20070701

REACTIONS (2)
  - OSTEITIS [None]
  - PAIN IN JAW [None]
